FAERS Safety Report 6635171-X (Version None)
Quarter: 2010Q1

REPORT INFORMATION
  Report Type: 
  Country: None (occurrence: None)
  Receive Date: 20100315
  Receipt Date: 20100303
  Transmission Date: 20100710
  Serious: Yes (Other)
  Sender: FDA-Public Use
  Company Number: JP-ROCHE-641840

PATIENT
  Age: 65 Year
  Sex: Male

DRUGS (6)
  1. AVASTIN [Suspect]
     Indication: RECTAL CANCER RECURRENT
     Route: 041
     Dates: start: 20090401, end: 20090601
  2. ELPLAT [Concomitant]
     Route: 041
  3. FLUOROURACIL [Concomitant]
     Dosage: ROUTE: INTRAVENOUS BOLUS
     Route: 040
  4. FLUOROURACIL [Concomitant]
     Dosage: ROUTE: INTRAVENOUS DRIP
     Route: 040
  5. LEVOFOLINATE [Concomitant]
     Dosage: DRUG: LEVOFOLINATE CALCIUM
     Route: 041
  6. LEVOFOLINATE [Concomitant]
     Route: 041

REACTIONS (1)
  - NECROTISING FASCIITIS [None]
